FAERS Safety Report 25598571 (Version 2)
Quarter: 2025Q3

REPORT INFORMATION
  Report Type: Spontaneous
  Country: JP (occurrence: JP)
  Receive Date: 20250723
  Receipt Date: 20250804
  Transmission Date: 20251020
  Serious: Yes (Death, Hospitalization, Other)
  Sender: SANOFI AVENTIS
  Company Number: JP-SAKK-2025SA211221AA

PATIENT
  Age: 60 Year
  Sex: Female

DRUGS (1)
  1. PLAVIX [Suspect]
     Active Substance: CLOPIDOGREL BISULFATE
     Indication: Lacunar infarction
     Route: 048

REACTIONS (4)
  - Putamen haemorrhage [Fatal]
  - Hydrocephalus [Fatal]
  - Cerebral ventricular rupture [Fatal]
  - Fall [Unknown]
